FAERS Safety Report 8054431-1 (Version None)
Quarter: 2012Q1

REPORT INFORMATION
  Report Type: 
  Country: None (occurrence: None)
  Receive Date: 20120118
  Receipt Date: 20120112
  Transmission Date: 20120608
  Serious: Yes (Congenital Anomaly)
  Sender: FDA-Public Use
  Company Number: GB-GILEAD-2012-0049274

PATIENT

DRUGS (2)
  1. ATAZANAVIR [Concomitant]
     Route: 064
  2. TRUVADA [Suspect]
     Indication: HIV INFECTION
     Route: 064

REACTIONS (1)
  - CONGENITAL ANOMALY [None]
